FAERS Safety Report 9462989 (Version 2)
Quarter: 2013Q3

REPORT INFORMATION
  Report Type: Spontaneous
  Country: RU (occurrence: RU)
  Receive Date: 20130816
  Receipt Date: 20130819
  Transmission Date: 20140515
  Serious: Yes (Hospitalization, Other)
  Sender: FDA-Public Use
  Company Number: PHHY2013RU084292

PATIENT
  Age: 75 Year
  Sex: Male

DRUGS (9)
  1. SPIRONOLACTONE [Suspect]
     Indication: CARDIAC FAILURE CHRONIC
     Dosage: 50 MG/DAY
  2. ENALAPRIL [Interacting]
     Indication: CARDIAC FAILURE CHRONIC
     Dosage: 20 MG/DAY
  3. DIGOXIN [Suspect]
     Dosage: 0.375 MG DAILY
  4. PRADAXA [Concomitant]
     Dosage: 220 MG/DAY
  5. METOPROLOL SUCCINATE [Concomitant]
     Dosage: 150 MG DAILY
  6. AMLODIPINE [Concomitant]
     Dosage: 2.5 MG DAILY
  7. FUROSEMIDE [Concomitant]
     Dosage: 80 MG DAILY
  8. ATORVASTATIN [Concomitant]
     Dosage: 20 MG DAILY
  9. DIABETONE [Concomitant]
     Dosage: 30 MG DAILY

REACTIONS (5)
  - Dizziness [Recovering/Resolving]
  - Asthenia [Recovering/Resolving]
  - Renal failure [Recovering/Resolving]
  - Drug interaction [Unknown]
  - Ventricular extrasystoles [Unknown]
